FAERS Safety Report 6880730-2 (Version None)
Quarter: 2010Q3

REPORT INFORMATION
  Report Type: 
  Country: None (occurrence: None)
  Receive Date: 20100728
  Receipt Date: 20100715
  Transmission Date: 20110219
  Serious: Yes (Other)
  Sender: FDA-Public Use
  Company Number: US-BAYER-201022622NA

PATIENT
  Age: 39 Year
  Sex: Female

DRUGS (1)
  1. MIRENA [Suspect]
     Indication: CONTRACEPTION
     Dosage: FREQUENCY: INTRAUTERINE
     Route: 015
     Dates: start: 20100201, end: 20100412

REACTIONS (4)
  - DEVICE DISLOCATION [None]
  - MEDICAL DEVICE PAIN [None]
  - PELVIC PAIN [None]
  - UTERINE PERFORATION [None]
